FAERS Safety Report 10406732 (Version 1)
Quarter: 2014Q3

REPORT INFORMATION
  Report Type: Spontaneous
  Country: US (occurrence: US)
  Receive Date: 20140825
  Receipt Date: 20140825
  Transmission Date: 20150326
  Serious: Yes (Other)
  Sender: FDA-Public Use
  Company Number: US-BAYER-2014-126325

PATIENT
  Sex: Female

DRUGS (1)
  1. MIRENA [Suspect]
     Active Substance: LEVONORGESTREL
     Indication: CONTRACEPTION
     Dosage: 20 MCG/24HR, CONT
     Route: 015
     Dates: start: 20100820

REACTIONS (5)
  - Haemorrhage in pregnancy [None]
  - Drug ineffective [None]
  - Pregnancy with contraceptive device [None]
  - Abortion missed [None]
  - Menstruation delayed [None]

NARRATIVE: CASE EVENT DATE: 20140723
